FAERS Safety Report 18245745 (Version 1)
Quarter: 2020Q3

REPORT INFORMATION
  Report Type: Spontaneous
  Country: AU (occurrence: AU)
  Receive Date: 20200909
  Receipt Date: 20200909
  Transmission Date: 20201103
  Serious: Yes (Other)
  Sender: FDA-Public Use
  Company Number: AU-ROCHE-2673185

PATIENT
  Sex: Female

DRUGS (4)
  1. PACLITAXEL. [Suspect]
     Active Substance: PACLITAXEL
     Indication: OVARIAN CLEAR CELL CARCINOMA
     Route: 065
  2. CARBOPLATIN. [Suspect]
     Active Substance: CARBOPLATIN
     Indication: OVARIAN CLEAR CELL CARCINOMA
     Route: 065
  3. AVASTIN [Suspect]
     Active Substance: BEVACIZUMAB
     Indication: OVARIAN CLEAR CELL CARCINOMA
     Route: 065
  4. VOTRIENT [Suspect]
     Active Substance: PAZOPANIB HYDROCHLORIDE
     Indication: OVARIAN CLEAR CELL CARCINOMA
     Route: 048

REACTIONS (3)
  - Ovarian clear cell carcinoma [Unknown]
  - Malignant neoplasm progression [Unknown]
  - Therapy non-responder [Unknown]
